FAERS Safety Report 9569075 (Version 2)
Quarter: 2013Q3

REPORT INFORMATION
  Report Type: Spontaneous
  Country: US (occurrence: US)
  Receive Date: 20130930
  Receipt Date: 20130930
  Transmission Date: 20140515
  Serious: No
  Sender: FDA-Public Use
  Company Number: US-AMGEN-USASP2013056554

PATIENT
  Age: 56 Year
  Sex: Female

DRUGS (6)
  1. ENBREL [Suspect]
     Indication: PSORIATIC ARTHROPATHY
     Dosage: 50 MG, QWK
     Route: 058
     Dates: start: 201202
  2. ENBREL [Suspect]
     Indication: PSORIASIS
  3. MELOXICAM [Concomitant]
     Indication: ARTHRITIS
     Dosage: UNK
     Route: 048
     Dates: start: 2010
  4. SEROQUEL [Concomitant]
     Dosage: UNK
     Route: 048
  5. ZOLPIDEM [Concomitant]
     Dosage: UNK
     Route: 048
  6. VICODIN [Concomitant]
     Dosage: UNK
     Route: 048

REACTIONS (3)
  - Pain [Not Recovered/Not Resolved]
  - Fatigue [Not Recovered/Not Resolved]
  - Injection site pain [Not Recovered/Not Resolved]
